FAERS Safety Report 5586857-X (Version None)
Quarter: 2008Q1

REPORT INFORMATION
  Report Type: 
  Country: None (occurrence: None)
  Receive Date: 20080110
  Receipt Date: 20070215
  Transmission Date: 20080703
  Serious: Yes (Other)
  Sender: FDA-Public Use
  Company Number: US-BRISTOL-MYERS SQUIBB COMPANY-13681630

PATIENT

DRUGS (2)
  1. CISPLATIN [Suspect]
     Indication: CHEMOTHERAPY
  2. GEMCITABINE [Suspect]
     Indication: CHEMOTHERAPY

REACTIONS (1)
  - DEEP VEIN THROMBOSIS [None]
